FAERS Safety Report 6630312-2 (Version None)
Quarter: 2010Q1

REPORT INFORMATION
  Report Type: 
  Country: None (occurrence: None)
  Receive Date: 20100311
  Receipt Date: 20100308
  Transmission Date: 20100710
  Serious: Yes (Hospitalization)
  Sender: FDA-Public Use
  Company Number: US-B.I. PHARMACEUTICALS,INC./RIDGEFIELD-2009-BP-06453BP

PATIENT
  Sex: Female

DRUGS (9)
  1. SPIRIVA [Suspect]
     Indication: ASTHMA
     Dosage: 18 MCG
     Route: 055
     Dates: start: 20080801
  2. SPIRIVA [Suspect]
     Indication: CHRONIC OBSTRUCTIVE PULMONARY DISEASE
  3. CARDIZEM [Concomitant]
     Indication: HYPERTENSION
  4. GLYBURIDE [Concomitant]
     Indication: TYPE 2 DIABETES MELLITUS
     Dosage: 25 MG
     Route: 048
     Dates: start: 20060101
  5. LIPITOR [Concomitant]
     Indication: HYPERLIPIDAEMIA
     Dates: start: 19970101
  6. RYTHMOL [Concomitant]
     Indication: ATRIAL FIBRILLATION
     Dates: start: 20060101
  7. SOTALOL [Concomitant]
     Indication: ATRIAL FIBRILLATION
     Dates: start: 20060101
  8. COUMADIN [Concomitant]
     Indication: ATRIAL FIBRILLATION
     Dates: start: 20060101
  9. ASPIRIN [Concomitant]
     Indication: ATRIAL FIBRILLATION
     Dates: start: 20060101

REACTIONS (5)
  - ATRIAL FIBRILLATION [None]
  - CATARACT [None]
  - COUGH [None]
  - DYSPNOEA EXERTIONAL [None]
  - SICK SINUS SYNDROME [None]
